FAERS Safety Report 18931148 (Version 1)
Quarter: 2021Q1

REPORT INFORMATION
  Report Type: Spontaneous
  Country: US (occurrence: US)
  Receive Date: 20210224
  Receipt Date: 20210224
  Transmission Date: 20210420
  Serious: No
  Sender: FDA-Public Use
  Company Number: US-CELGENEUS-USA-20210203940

PATIENT
  Sex: Female

DRUGS (2)
  1. REVLIMID [Suspect]
     Active Substance: LENALIDOMIDE
     Indication: MYELODYSPLASTIC SYNDROME
     Dosage: 10 MILLIGRAM
     Route: 048
     Dates: start: 20171017
  2. REVLIMID [Suspect]
     Active Substance: LENALIDOMIDE
     Indication: RUBBER SENSITIVITY
     Dosage: 5 MILLIGRAM
     Route: 048
     Dates: start: 201803

REACTIONS (1)
  - Neutropenia [Unknown]
